FAERS Safety Report 18226692 (Version 1)
Quarter: 2020Q3

REPORT INFORMATION
  Report Type: Report from Study
  Country: IN (occurrence: IN)
  Receive Date: 20200903
  Receipt Date: 20200903
  Transmission Date: 20201103
  Serious: Yes (Other)
  Sender: FDA-Public Use
  Company Number: NVSC2020IN237390

PATIENT
  Age: 64 Year
  Sex: Female

DRUGS (1)
  1. SCAPHO [Suspect]
     Active Substance: SECUKINUMAB
     Indication: SPONDYLOARTHROPATHY
     Dosage: 300 MG, QMO
     Route: 058
     Dates: start: 20200725

REACTIONS (7)
  - Pain [Unknown]
  - Arthralgia [Unknown]
  - Injection site pain [Unknown]
  - Therapeutic product effect incomplete [Unknown]
  - Hypothermia [Recovering/Resolving]
  - Injection site swelling [Unknown]
  - Mobility decreased [Unknown]

NARRATIVE: CASE EVENT DATE: 20200727
